FAERS Safety Report 8207259-3 (Version None)
Quarter: 2012Q1

REPORT INFORMATION
  Report Type: 
  Country: None (occurrence: None)
  Receive Date: 20120314
  Receipt Date: 20120306
  Transmission Date: 20120608
  Serious: No
  Sender: FDA-Public Use
  Company Number: US-PFIZER INC-2012060681

PATIENT
  Age: 63 Year
  Sex: Female

DRUGS (2)
  1. IBUPROFEN (ADVIL) [Suspect]
     Dosage: UNK
  2. CELEBREX [Suspect]
     Dosage: UNK

REACTIONS (1)
  - ALBUMIN URINE [None]
